FAERS Safety Report 8878659 (Version 1)
Quarter: 2012Q4

REPORT INFORMATION
  Report Type: 
  Country: IT (occurrence: IT)
  Receive Date: 20121026
  Receipt Date: 20121026
  Transmission Date: 20130627
  Serious: Yes (Disabling)
  Sender: FDA-Public Use
  Company Number: PHHY2012IT095937

PATIENT
  Age: 79 Year
  Sex: Female

DRUGS (8)
  1. ZOMETA [Suspect]
     Indication: MULTIPLE MYELOMA
     Dosage: UNK UKN, UNK
     Route: 042
     Dates: start: 20050901, end: 20111231
  2. PAMIDRONATE [Suspect]
     Indication: MULTIPLE MYELOMA
     Dosage: 90 mg, UNK
     Route: 042
     Dates: start: 20051216
  3. RANITIDINE [Concomitant]
     Dosage: UNK UKN, UNK
     Dates: start: 2007
  4. HYDROMORPHONE [Concomitant]
     Dosage: 16 mg, UNK
     Dates: start: 2007
  5. LOBIVON [Concomitant]
     Dosage: 5 mg, UNK
     Dates: start: 2007
  6. LANOXIN [Concomitant]
     Dosage: 1 DF, UNK
     Dates: start: 2007
  7. MICARDIS [Concomitant]
     Dosage: 40 mg 1 posologic unit
     Dates: start: 2007
  8. KADIUR [Concomitant]
     Dosage: 55 mg, UNK
     Dates: start: 2007

REACTIONS (2)
  - Osteonecrosis of jaw [Not Recovered/Not Resolved]
  - Exposed bone in jaw [Not Recovered/Not Resolved]
